FAERS Safety Report 15555474 (Version 1)
Quarter: 2018Q4

REPORT INFORMATION
  Report Type: Spontaneous
  Country: GB (occurrence: DE)
  Receive Date: 20181026
  Receipt Date: 20181026
  Transmission Date: 20190205
  Serious: Yes (Other)
  Sender: FDA-Public Use
  Company Number: DE-FRESENIUS KABI-FK201810918

PATIENT
  Age: 64 Year
  Sex: Female

DRUGS (3)
  1. 5-FLUOROURACIL [Suspect]
     Active Substance: FLUOROURACIL
     Indication: HEAD AND NECK CANCER
     Route: 065
     Dates: start: 20170817
  2. CETUXIMAB. [Suspect]
     Active Substance: CETUXIMAB
     Indication: HEAD AND NECK CANCER
     Route: 065
     Dates: start: 20170817
  3. CARBOPLATIN (MANUFACTURER UNKNOWN) [Suspect]
     Active Substance: CARBOPLATIN
     Indication: HEAD AND NECK CANCER
     Route: 065
     Dates: start: 20170817

REACTIONS (2)
  - Haematotoxicity [Unknown]
  - Dermatitis [Unknown]
